FAERS Safety Report 25068256 (Version 1)
Quarter: 2025Q1

REPORT INFORMATION
  Report Type: Report from Study
  Country: DE (occurrence: DE)
  Receive Date: 20250312
  Receipt Date: 20250312
  Transmission Date: 20250408
  Serious: Yes (Other)
  Sender: AUROBINDO
  Company Number: DE-SUN PHARMACEUTICAL INDUSTRIES LTD-2022RR-336839

PATIENT

DRUGS (2)
  1. MELPHALAN [Suspect]
     Active Substance: MELPHALAN
     Indication: Cholangiocarcinoma
     Route: 025
  2. MELPHALAN [Suspect]
     Active Substance: MELPHALAN
     Indication: Metastatic ocular melanoma

REACTIONS (2)
  - Febrile neutropenia [Unknown]
  - Therapeutic product effect incomplete [Unknown]
